FAERS Safety Report 6075081-2 (Version None)
Quarter: 2009Q1

REPORT INFORMATION
  Report Type: 
  Country: None (occurrence: None)
  Receive Date: 20090212
  Receipt Date: 20090121
  Transmission Date: 20090719
  Serious: Yes (Hospitalization)
  Sender: FDA-Public Use
  Company Number: FR-JNJFOC-20090202624

PATIENT
  Sex: Male

DRUGS (10)
  1. TOPALGIC [Suspect]
     Route: 048
  2. TOPALGIC [Suspect]
     Indication: HEADACHE
     Route: 048
  3. BI-PROFENID [Suspect]
     Route: 048
  4. BI-PROFENID [Suspect]
     Indication: HEADACHE
     Route: 048
  5. RELPAX [Suspect]
     Route: 048
  6. RELPAX [Suspect]
     Indication: HEADACHE
     Route: 048
  7. PROPOFAN [Concomitant]
     Route: 065
  8. OMEPRAZOLE [Concomitant]
     Route: 065
  9. PULMICORT-100 [Concomitant]
     Route: 065
  10. VENTOLIN [Concomitant]
     Route: 065

REACTIONS (1)
  - MIGRAINE [None]
